FAERS Safety Report 10112303 (Version 2)
Quarter: 2014Q2

REPORT INFORMATION
  Report Type: Spontaneous
  Country: US (occurrence: US)
  Receive Date: 20140425
  Receipt Date: 20140515
  Transmission Date: 20141212
  Serious: Yes (Hospitalization, Other)
  Sender: FDA-Public Use
  Company Number: US-UCBSA-119035

PATIENT
  Age: 62 Year
  Sex: Female
  Weight: 87.08 kg

DRUGS (4)
  1. CIMZIA [Suspect]
     Indication: RHEUMATOID ARTHRITIS
     Route: 058
     Dates: start: 2012, end: 201311
  2. PREDNISONE [Concomitant]
     Route: 048
     Dates: start: 201403
  3. ALLEVE [Concomitant]
  4. NEURONTIN [Concomitant]
     Dosage: EVERY 8 HOURS; 2-3 TIMES A DAY
     Route: 048

REACTIONS (3)
  - Coma [Unknown]
  - Vessel perforation [Unknown]
  - Joint swelling [Not Recovered/Not Resolved]
